FAERS Safety Report 23420798 (Version 2)
Quarter: 2024Q1

REPORT INFORMATION
  Report Type: Spontaneous
  Country: US (occurrence: US)
  Receive Date: 20240119
  Receipt Date: 20240227
  Transmission Date: 20240410
  Serious: Yes (Other)
  Sender: FDA-Public Use
  Company Number: US-BRISTOL-MYERS SQUIBB COMPANY-2024-009381

PATIENT
  Age: 68 Year
  Sex: Male
  Weight: 87.09 kg

DRUGS (2)
  1. POMALYST [Suspect]
     Active Substance: POMALIDOMIDE
     Indication: Plasma cell myeloma in remission
     Dosage: D1-21, 7 OFF
     Route: 048
     Dates: start: 20231220
  2. POMALYST [Suspect]
     Active Substance: POMALIDOMIDE
     Dosage: D1-21, 7 OFF
     Route: 048
     Dates: start: 202401

REACTIONS (1)
  - Neutropenia [Unknown]
